FAERS Safety Report 21974846 (Version 1)
Quarter: 2023Q1

REPORT INFORMATION
  Report Type: Spontaneous
  Country: CH (occurrence: CH)
  Receive Date: 20230209
  Receipt Date: 20230209
  Transmission Date: 20230417
  Serious: Yes (Hospitalization)
  Sender: FDA-Public Use
  Company Number: CH-SM-2022-20489

PATIENT
  Age: 71 Year
  Sex: Female

DRUGS (33)
  1. TOBRAMYCIN [Suspect]
     Active Substance: TOBRAMYCIN
     Indication: Product used for unknown indication
     Dosage: OBRACIN  (TOBRAMYCIN) 400 MG/TAG I.V. FROM 20.09.2022 TO 28.09.2022,
     Route: 042
     Dates: start: 20220920, end: 20220928
  2. CIPROFLOXACIN [Suspect]
     Active Substance: CIPROFLOXACIN
     Indication: Product used for unknown indication
     Dosage: 10/05/22 - CIPROFLOXACIN FOR HOSPITAL DISCHARGE ON 10/06/2022 UNTIL FURTHER NOTICE
     Route: 065
     Dates: start: 20221005
  3. KEFZOL [Suspect]
     Active Substance: CEFAZOLIN SODIUM
     Indication: Product used for unknown indication
     Dosage: 6 GRAM DAILY; KEFZOL  (CEFAZOLIN) 6G/DAY I.V. FROM 08/18/2022 AND 09/19/2022 TO 09/28/2022,
     Route: 042
     Dates: start: 20220818, end: 20220818
  4. KEFZOL [Suspect]
     Active Substance: CEFAZOLIN SODIUM
     Dosage: 6 GRAM DAILY; KEFZOL  (CEFAZOLIN) 6G/DAY I.V. FROM 08/18/2022 AND 09/19/2022 TO 09/28/2022,
     Route: 042
     Dates: start: 20220919, end: 20220928
  5. CEFIDEROCOL [Suspect]
     Active Substance: CEFIDEROCOL
     Indication: Product used for unknown indication
     Dosage: 6 GRAM DAILY; FETCROJA  (CEFIDEROCOL) 6G/DAY IV FROM 19.09.2022 TO,
     Route: 042
     Dates: start: 20220919, end: 20221005
  6. MEROPENEM [Suspect]
     Active Substance: MEROPENEM
     Indication: Product used for unknown indication
     Dosage: 3 GRAM DAILY; MEROPENEM LABATEC  (MEROPENEM) 3 G/DAY IV FROM 09/08/2022 TO 09/15/2022,
     Route: 042
     Dates: start: 20220908, end: 20220915
  7. KETAMIN [Suspect]
     Active Substance: KETAMINE
     Indication: Product used for unknown indication
     Dosage: 250 MILLIGRAM DAILY; KETAMINE (IN-HOUSE PRODUCTION) 250 MG/DAY I.V. FROM 09/28/2022 TO 10/02/2022,
     Route: 042
     Dates: start: 20220928, end: 20221002
  8. AMOXICILLIN\CLAVULANATE POTASSIUM [Concomitant]
     Active Substance: AMOXICILLIN\CLAVULANATE POTASSIUM
     Indication: Product used for unknown indication
     Dosage: 18.08.22 CO-AMOXICILLIN
     Route: 065
     Dates: start: 20220818, end: 20220818
  9. AMOXICILLIN\CLAVULANATE POTASSIUM [Concomitant]
     Active Substance: AMOXICILLIN\CLAVULANATE POTASSIUM
     Dosage: 08/18 - 08/28/22 AMOXICILLIN/CLAVULANIC ACID
     Route: 065
     Dates: start: 20220818, end: 20220828
  10. CLINDAMYCIN [Concomitant]
     Active Substance: CLINDAMYCIN
     Indication: Product used for unknown indication
     Dosage: 18.08. - 23.08. UND 27.08. - 28.08.22 CLINDAMYCIN,
     Route: 065
     Dates: start: 20220818, end: 20220823
  11. CLINDAMYCIN [Concomitant]
     Active Substance: CLINDAMYCIN
     Dosage: 18.08. - 23.08. UND 27.08. - 28.08.22 CLINDAMYCIN,
     Route: 065
     Dates: start: 20220827, end: 20220828
  12. PIPERACILLIN SODIUM\TAZOBACTAM SODIUM [Concomitant]
     Active Substance: PIPERACILLIN SODIUM\TAZOBACTAM SODIUM
     Indication: Product used for unknown indication
     Dosage: 28.08.22 - 04.09.22 PIPERACILLIN/TAZOBACTAM,
     Route: 065
     Dates: start: 20220828, end: 20220904
  13. CEFEPIME HYDROCHLORIDE [Concomitant]
     Active Substance: CEFEPIME HYDROCHLORIDE
     Indication: Product used for unknown indication
     Dosage: 04.09.22 - 07.09.22 CEFEPIM,
     Route: 065
     Dates: start: 20220904, end: 20220907
  14. PANTOPRAZOLE SODIUM [Concomitant]
     Active Substance: PANTOPRAZOLE SODIUM
     Indication: Product used for unknown indication
     Dosage: PANTOPRAZOLE SANDOZ  (PANTOPRAZOLE) 20 MG (EVEN BEFORE HOSPITALIZATION AS LONG-TERM MEDICATION), FRO
     Route: 048
     Dates: end: 20220923
  15. CANDESARTAN CILEXETIL [Concomitant]
     Active Substance: CANDESARTAN CILEXETIL
     Indication: Product used for unknown indication
     Dosage: CANDESARTAN MEPHA  (CANDESARTAN) 16 MG (EVEN BEFORE HOSPITALIZATION AS LONG-TERM MEDICATION) UP TO,
     Route: 048
  16. KCL HAUSMANN [Concomitant]
     Indication: Product used for unknown indication
     Dosage: KCL RETARD HAUSMANN  (POTASSIUM CHLORIDE) FROM 08/26/2022 UNTIL FURTHER NOTICE,
     Route: 048
     Dates: start: 20220826
  17. DAFALGAN [Concomitant]
     Active Substance: ACETAMINOPHEN
     Indication: Product used for unknown indication
     Dosage: DAFALGAN  (PARACETAMOL) 500 MG FROM 08/27/2022 TO 09/29/2022; RESTART AFTER HOSPITAL EXPA
     Dates: start: 20220827, end: 20220929
  18. DAFALGAN [Concomitant]
     Active Substance: ACETAMINOPHEN
     Dosage: DAFALGAN  (PARACETAMOL) 500 MG FROM 08/27/2022 TO 09/29/2022; RESTART AFTER HOSPITAL EXPA,
     Dates: start: 2022
  19. BETAHISTIN MEPHA [Concomitant]
     Indication: Product used for unknown indication
     Dosage: BETAHISTIN MEPHA  (BETAHISTIN) 16 MG FROM 08/29/2022 PAUSED FROM 09/10/2022,
     Route: 048
     Dates: start: 20220829, end: 20220910
  20. Novalgin [Concomitant]
     Indication: Product used for unknown indication
     Dosage: NOVALGIN  (METAMIZOL) 500 MG FROM 08/31/2022 UNTIL FURTHER NOTICE
     Route: 048
     Dates: start: 20220831
  21. AMLODIPINE [Concomitant]
     Active Substance: AMLODIPINE BESYLATE
     Indication: Product used for unknown indication
     Dosage: AMLODIPIN SANDOZ  (AMLODIPINE) FROM 03.10.2022 AS A FIXED MEDICATION (PREVIOUSLY FROM 02.09.2022 IN
     Route: 048
     Dates: start: 20221003
  22. ELIQUIS [Concomitant]
     Active Substance: APIXABAN
     Indication: Product used for unknown indication
     Dosage: ELIQUIS  (APIXABAN) 5 MG FROM 09/28/2022 UNTIL FURTHER NOTICE
     Route: 048
     Dates: start: 20220928
  23. PREDNISOLONE [Concomitant]
     Active Substance: PREDNISOLONE
     Indication: Product used for unknown indication
     Dosage: SPIRICORT  (PREDNISOLONE) 50 MG FROM SEPTEMBER 28, 2022 UNTIL FURTHER NOTICE
     Route: 048
     Dates: start: 20220928
  24. LEVETIRACETAM [Concomitant]
     Active Substance: LEVETIRACETAM
     Indication: Product used for unknown indication
     Dosage: LEVETIRACETAM DESITIN  (LEVETIRACETAM) FROM 09/16/2022 UNTIL FURTHER NOTICE
     Dates: start: 20220916
  25. MAGNESIUM [Concomitant]
     Active Substance: MAGNESIUM
     Indication: Product used for unknown indication
     Dosage: MAGNESIUM DIASPORAL  (MAGNESIUM) FROM SEPTEMBER 18, 2022 UNTIL FURTHER NOTICE,
     Route: 048
     Dates: start: 20220918
  26. THIAMINE HYDROCHLORIDE [Concomitant]
     Active Substance: THIAMINE HYDROCHLORIDE
     Indication: Product used for unknown indication
     Dosage: BENERVA  (VITAMIN B1) 300 MG FROM 22.09.2022 TO,
     Route: 048
     Dates: start: 20220922, end: 20221004
  27. NOVORAPID [Concomitant]
     Active Substance: INSULIN ASPART
     Indication: Product used for unknown indication
     Dosage: NOVORAPID  (INSULIN ASPARTATE) SUBCUTANEOUSLY FROM SEPTEMBER 29, 2022 UNTIL FURTHER NOTICE,
     Route: 058
     Dates: start: 20220929
  28. VALVERDE SCHLAF [Concomitant]
     Indication: Product used for unknown indication
     Dosage: VALVERDE SLEEP (VALERIAN, HOPS) IN RESERVE FROM 08/18/2022, LAST INTAKE ON 08/24/2022;
     Route: 048
     Dates: start: 20220818
  29. TRAMADOL [Concomitant]
     Active Substance: TRAMADOL
     Indication: Product used for unknown indication
     Dosage: TRAMAL  (TRAMADOL) DROPS IN RESERVE FROM 09/02/2022 TO 09/06/2022; AS NECESSARY,
     Route: 048
     Dates: start: 20220902, end: 20220906
  30. ONDANSETRON [Concomitant]
     Active Substance: ONDANSETRON
     Indication: Product used for unknown indication
     Dosage: ONDANSETRON LABATEC  (ONDANSETRON) IV IN RESERVE FROM 08/19/2022 UNTIL 09/22/2022,
     Route: 042
     Dates: start: 20220819, end: 20220922
  31. MORPHINE HYDROCHLORIDE [Concomitant]
     Active Substance: MORPHINE HYDROCHLORIDE
     Indication: Product used for unknown indication
     Dosage: MORPHIN HCL SINTETICA  (MORPHIN) I.V. IN RESERVE AB DEM 27.08.2022 BIS 13.09.2022 ; AS NECESSARY
     Route: 042
     Dates: start: 20220827, end: 20220913
  32. PRIMPERAN [Concomitant]
     Active Substance: METOCLOPRAMIDE HYDROCHLORIDE
     Indication: Product used for unknown indication
     Dosage: PRIMPERAN  (METOCLOPRAMID) I.V. IN RESERVE AB DEM 27.08.2022 BIS 11.09.2022 ; AS NECESSARY
     Route: 042
     Dates: start: 20220827, end: 20220911
  33. HYDROMORPHONUM [Concomitant]
     Indication: Product used for unknown indication
     Dosage: HYDROMORPHONE IN RESERVE 1.5 MG MAXIMUM/24 HOURS: 9 MG FROM 09/16/2022, LAST ON 09/27/2022; AS,
     Route: 042
     Dates: start: 20220916, end: 20220927

REACTIONS (1)
  - Drug-induced liver injury [Recovering/Resolving]

NARRATIVE: CASE EVENT DATE: 20221003
